FAERS Safety Report 9285922 (Version 1)
Quarter: 2013Q2

REPORT INFORMATION
  Report Type: Spontaneous
  Country: US (occurrence: None)
  Receive Date: 20130510
  Receipt Date: 20130510
  Transmission Date: 20140414
  Serious: No
  Sender: FDA-Public Use
  Company Number: None

PATIENT
  Age: 72 None
  Sex: Female
  Weight: 68.04 kg

DRUGS (2)
  1. CHLOROQUINE [Suspect]
     Indication: MALARIA PROPHYLAXIS
     Dosage: 7 PILLS; 1 PER WEEK
     Dates: start: 20121006, end: 20121110
  2. TERBINAFINE [Suspect]
     Indication: FUNGAL INFECTION
     Dosage: 21; 7 DAYS OFF, 3 WEEKS REPEAT
     Dates: start: 20120924, end: 20121022

REACTIONS (2)
  - Dizziness [None]
  - Balance disorder [None]
